FAERS Safety Report 6213212-1 (Version None)
Quarter: 2009Q2

REPORT INFORMATION
  Report Type: 
  Country: None (occurrence: None)
  Receive Date: 20090602
  Receipt Date: 20090602
  Transmission Date: 20091009
  Serious: Yes (Other)
  Sender: FDA-Public Use
  Company Number: None

PATIENT
  Age: 67 Year
  Sex: Male
  Weight: 107 kg

DRUGS (1)
  1. ETANERCEPT [Suspect]
     Indication: RHEUMATOID ARTHRITIS
     Dosage: 50 MG QWEEK SQ
     Route: 058
     Dates: start: 20051101, end: 20090407

REACTIONS (2)
  - IDIOSYNCRATIC DRUG REACTION [None]
  - IMMEDIATE POST-INJECTION REACTION [None]
